FAERS Safety Report 21288120 (Version 1)
Quarter: 2022Q3

REPORT INFORMATION
  Report Type: Spontaneous
  Country: US (occurrence: US)
  Receive Date: 20220902
  Receipt Date: 20220902
  Transmission Date: 20221027
  Serious: No
  Sender: FDA-Public Use
  Company Number: US-ABBVIE-22K-163-4474419-00

PATIENT
  Sex: Female

DRUGS (7)
  1. SYNTHROID [Interacting]
     Active Substance: LEVOTHYROXINE SODIUM
     Indication: Thyroid disorder
     Dosage: AT 6:00 AM
     Route: 048
  2. SYNTHROID [Interacting]
     Active Substance: LEVOTHYROXINE SODIUM
     Route: 048
  3. SYNTHROID [Interacting]
     Active Substance: LEVOTHYROXINE SODIUM
     Route: 048
  4. LIOTHYRONINE SODIUM [Suspect]
     Active Substance: LIOTHYRONINE SODIUM
     Indication: Thyroid disorder
     Dosage: ABOUT 9:00 AM
     Route: 065
  5. LIOTHYRONINE SODIUM [Suspect]
     Active Substance: LIOTHYRONINE SODIUM
     Dosage: ABOUT 11:00 AM
     Route: 065
  6. LIOTHYRONINE SODIUM [Suspect]
     Active Substance: LIOTHYRONINE SODIUM
     Dosage: ABOUT 12:00 TO 1:00 PM
     Route: 065
  7. LIOTHYRONINE SODIUM [Suspect]
     Active Substance: LIOTHYRONINE SODIUM
     Dosage: AT 6:00 AM
     Route: 065

REACTIONS (3)
  - Drug effect less than expected [Unknown]
  - Drug interaction [Unknown]
  - Off label use [Unknown]
